FAERS Safety Report 14613796 (Version 3)
Quarter: 2018Q2

REPORT INFORMATION
  Report Type: Spontaneous
  Country: US (occurrence: US)
  Receive Date: 20180308
  Receipt Date: 20180529
  Transmission Date: 20180711
  Serious: Yes (Congenital Anomaly, Other)
  Sender: FDA-Public Use
  Company Number: PHEH2018US008746

PATIENT
  Sex: Male

DRUGS (2)
  1. ZOFRAN [Suspect]
     Active Substance: ONDANSETRON HYDROCHLORIDE
     Indication: FOETAL EXPOSURE DURING PREGNANCY
     Route: 064
  2. ONDANSETRON [Suspect]
     Active Substance: ONDANSETRON
     Indication: FOETAL EXPOSURE DURING PREGNANCY
     Dosage: MOTHER^S DOSE: 4 MG, QD, PRN
     Route: 064

REACTIONS (6)
  - Pyloric stenosis [Unknown]
  - Vomiting [Unknown]
  - Gastrooesophageal reflux disease [Unknown]
  - Injury [Unknown]
  - Foetal exposure during pregnancy [Unknown]
  - Haematuria [Unknown]
